FAERS Safety Report 25504273 (Version 1)
Quarter: 2025Q3

REPORT INFORMATION
  Report Type: Report from Study
  Country: US (occurrence: US)
  Receive Date: 20250702
  Receipt Date: 20250702
  Transmission Date: 20251020
  Serious: Yes (Other)
  Sender: ACADIA PHARMACEUTICALS
  Company Number: US-ACADIA PHARMACEUTICALS INC.-ACA-2025-PIM-007815

PATIENT
  Age: 71 Year
  Sex: Male

DRUGS (11)
  1. NUPLAZID [Suspect]
     Active Substance: PIMAVANSERIN TARTRATE
     Indication: Parkinson^s disease
     Dosage: 34 MILLIGRAM, QD
     Route: 048
     Dates: start: 20250625
  2. KETOCONAZOLE [Concomitant]
     Active Substance: KETOCONAZOLE
  3. MIRABEGRON [Concomitant]
     Active Substance: MIRABEGRON
  4. LISINOPRIL [Concomitant]
     Active Substance: LISINOPRIL
  5. TAMSULOSIN [Concomitant]
     Active Substance: TAMSULOSIN
  6. ROPINIROLE [Concomitant]
     Active Substance: ROPINIROLE
  7. GABAPENTIN [Concomitant]
     Active Substance: GABAPENTIN
  8. OXYBUTYNIN [Concomitant]
     Active Substance: OXYBUTYNIN
  9. QUETIAPINE [Concomitant]
     Active Substance: QUETIAPINE
  10. NITROFURANTOIN [Concomitant]
     Active Substance: NITROFURANTOIN
  11. DULOXETINE [Concomitant]
     Active Substance: DULOXETINE

REACTIONS (2)
  - Dementia with Lewy bodies [Unknown]
  - Psychotic disorder [Unknown]

NARRATIVE: CASE EVENT DATE: 20250625
